FAERS Safety Report 24346397 (Version 1)
Quarter: 2024Q3

REPORT INFORMATION
  Report Type: Spontaneous
  Country: US (occurrence: US)
  Receive Date: 20240921
  Receipt Date: 20240921
  Transmission Date: 20241016
  Serious: No
  Sender: JOHNSON AND JOHNSON
  Company Number: US-JNJFOC-20240950223

PATIENT
  Age: 9 Decade
  Sex: Female

DRUGS (1)
  1. WOMENS ROGAINE UNSCENTED [Suspect]
     Active Substance: MINOXIDIL
     Indication: Alopecia
     Dosage: JUST ENOUGH TO COVER THE TOP OF HEAD ONCE A DAY
     Route: 061

REACTIONS (3)
  - Alopecia [Unknown]
  - Product container issue [Unknown]
  - Incorrect dose administered [Unknown]
